FAERS Safety Report 6241568-2 (Version None)
Quarter: 2009Q2

REPORT INFORMATION
  Report Type: 
  Country: None (occurrence: None)
  Receive Date: 20090623
  Receipt Date: 20031014
  Transmission Date: 20091009
  Serious: Yes (Hospitalization)
  Sender: FDA-Public Use
  Company Number: SE-ROCHE-349116

PATIENT
  Sex: Female
  Weight: 57.9 kg

DRUGS (34)
  1. DACLIZUMAB [Suspect]
     Route: 042
     Dates: start: 20030521
  2. DACLIZUMAB [Suspect]
     Dosage: FOR 4 DOSES.
     Route: 042
     Dates: start: 20030604, end: 20030714
  3. MYCOPHENOLATE MOFETIL [Suspect]
     Route: 048
     Dates: start: 20030521
  4. MYCOPHENOLATE MOFETIL [Suspect]
     Route: 048
     Dates: start: 20030916
  5. MYCOPHENOLATE MOFETIL [Suspect]
     Route: 048
     Dates: start: 20051124
  6. SIROLIMUS [Suspect]
     Dosage: DRUG REPORTED: RAPAMUNE
     Route: 048
     Dates: start: 20030522
  7. PREDNISOLONE [Suspect]
     Route: 048
     Dates: start: 20030522
  8. PREDNISOLONE [Suspect]
     Route: 048
     Dates: start: 20030916
  9. PREDNISOLONE [Suspect]
     Route: 048
     Dates: start: 20031124
  10. PREDNISOLONE [Suspect]
     Route: 048
     Dates: start: 20051124
  11. AMLODIPINE [Concomitant]
     Route: 048
     Dates: start: 20030523
  12. AMLODIPINE [Concomitant]
     Route: 048
     Dates: start: 20030527
  13. AMLODIPINE [Concomitant]
     Route: 048
     Dates: start: 20040813
  14. METOPROLOL SUCCINATE [Concomitant]
     Route: 048
     Dates: start: 20030523
  15. METOPROLOL SUCCINATE [Concomitant]
     Route: 048
     Dates: start: 20030524
  16. METOPROLOL SUCCINATE [Concomitant]
     Route: 048
     Dates: start: 20040217
  17. GANCICLOVIR [Concomitant]
     Route: 048
     Dates: start: 20030526, end: 20030820
  18. ATORVASTATIN CALCIUM [Concomitant]
     Route: 048
     Dates: start: 20030530
  19. ATORVASTATIN CALCIUM [Concomitant]
     Route: 048
     Dates: start: 20040217
  20. FUROSEMID [Concomitant]
     Route: 048
     Dates: start: 20031103
  21. CEFOTAXIM [Concomitant]
     Route: 042
     Dates: start: 20030521
  22. CEFUROXIME [Concomitant]
     Route: 042
     Dates: start: 20040813
  23. CEFUROXIME [Concomitant]
     Route: 042
     Dates: start: 20040817
  24. CIPROFLOXACIN [Concomitant]
     Route: 048
     Dates: start: 20031016
  25. CIPROFLOXACIN [Concomitant]
     Dosage: DRUG REPORTED: CIPROFLOXAZIN
     Route: 048
     Dates: start: 20031017, end: 20031026
  26. CIPROFLOXACIN [Concomitant]
     Route: 048
     Dates: start: 20040202, end: 20040216
  27. CIPROFLOXACIN [Concomitant]
     Route: 048
     Dates: start: 20040817, end: 20040828
  28. DOXAZOSIN MESYLATE [Concomitant]
     Route: 048
     Dates: start: 20030527, end: 20030604
  29. HYDROCORTISON [Suspect]
     Route: 042
     Dates: start: 20040127
  30. HYDROCORTISON [Suspect]
     Route: 042
     Dates: start: 20040813
  31. PENTAMIDIN [Concomitant]
     Dosage: ROUTE: IH
     Route: 050
     Dates: start: 20030527
  32. PENTAMIDIN [Concomitant]
     Route: 050
     Dates: start: 20030804
  33. PENTAMIDIN [Concomitant]
     Route: 050
     Dates: start: 20030916
  34. PENTAMIDIN [Concomitant]
     Route: 050
     Dates: start: 20031016

REACTIONS (2)
  - SEPSIS [None]
  - UROSEPSIS [None]
